FAERS Safety Report 5541512-7 (Version None)
Quarter: 2007Q4

REPORT INFORMATION
  Report Type: 
  Country: None (occurrence: None)
  Receive Date: 20071210
  Receipt Date: 20071205
  Transmission Date: 20080405
  Serious: Yes (Life-Threatening, Hospitalization, Other)
  Sender: FDA-Public Use
  Company Number: PHBS2007JP14181

PATIENT
  Age: 76 Year
  Sex: Male
  Weight: 55 kg

DRUGS (11)
  1. LAMISIL [Suspect]
     Indication: NAIL TINEA
     Dosage: 125 MG/D
     Route: 048
     Dates: start: 20070615, end: 20070720
  2. VESICARE [Concomitant]
     Indication: URETHRAL STENOSIS
     Dosage: 5 MG/D
     Route: 048
     Dates: start: 20070521, end: 20070521
  3. TERBINAFINE HYDROCHLORIDE [TEBEANA] [Concomitant]
     Indication: NAIL TINEA
     Route: 061
     Dates: start: 20070615, end: 20070814
  4. ENALAPRIL MALEATE [LERITE] [Concomitant]
     Indication: HYPERTENSION
     Dosage: 5 MG/D
     Route: 048
     Dates: end: 20070823
  5. LASIX [Concomitant]
     Indication: HYPERTENSION
     Dosage: 20 MG/D
     Route: 048
     Dates: end: 20070823
  6. LIPITOR [Concomitant]
     Dosage: 5 MG/D
     Route: 048
     Dates: end: 20070823
  7. PREDONINE [Concomitant]
     Dosage: 30 MG/D
     Route: 048
     Dates: start: 20070808
  8. PREDONINE [Concomitant]
     Dosage: 20 MG/D
     Route: 048
     Dates: start: 20070812
  9. PREDONINE [Concomitant]
     Dosage: 60 MG/D
     Route: 041
  10. PREDONINE [Concomitant]
     Dosage: 30 MG/D
     Route: 048
  11. PREDONINE [Concomitant]
     Dosage: 25 MG/D
     Route: 048

REACTIONS (21)
  - ALANINE AMINOTRANSFERASE INCREASED [None]
  - ANAEMIA [None]
  - ANOREXIA [None]
  - ASPARTATE AMINOTRANSFERASE INCREASED [None]
  - BLOOD ALKALINE PHOSPHATASE INCREASED [None]
  - BLOOD BILIRUBIN INCREASED [None]
  - BLOOD CREATININE INCREASED [None]
  - BLOOD PRESSURE DECREASED [None]
  - BLOOD UREA INCREASED [None]
  - CHOLESTASIS [None]
  - GAMMA-GLUTAMYLTRANSFERASE INCREASED [None]
  - GASTROINTESTINAL HAEMORRHAGE [None]
  - HAEMOGLOBIN DECREASED [None]
  - HEPATIC ENCEPHALOPATHY [None]
  - JAUNDICE [None]
  - MELAENA [None]
  - PRURITUS [None]
  - PYELONEPHRITIS ACUTE [None]
  - RENAL IMPAIRMENT [None]
  - SHOCK HAEMORRHAGIC [None]
  - THROMBOPHLEBITIS [None]
